FAERS Safety Report 13926571 (Version 1)
Quarter: 2017Q3

REPORT INFORMATION
  Report Type: Report from Study
  Country: None (occurrence: CA)
  Receive Date: 20170831
  Receipt Date: 20170831
  Transmission Date: 20171127
  Serious: Yes (Death)
  Sender: FDA-Public Use
  Company Number: CA-ABBVIE-17P-028-2087876-00

PATIENT
  Sex: Female
  Weight: 77.5 kg

DRUGS (1)
  1. HOLKIRA PAK [Suspect]
     Active Substance: DASABUVIR\OMBITASVIR\PARITAPREVIR\RITONAVIR
     Indication: HEPATITIS C
     Dosage: PARITAPREVIR 150MG/RITONAVIR 100M /OMBITASVIR 25MG AM AND DASABUVIR 250MG AM/PM
     Route: 048
     Dates: start: 20161130, end: 20170222

REACTIONS (1)
  - Death [Fatal]
